FAERS Safety Report 8342160-6 (Version None)
Quarter: 2012Q2

REPORT INFORMATION
  Report Type: 
  Country: None (occurrence: None)
  Receive Date: 20120507
  Receipt Date: 20120427
  Transmission Date: 20120825
  Serious: Yes (Other)
  Sender: FDA-Public Use
  Company Number: CHPA2012US009489

PATIENT
  Age: 14 Month
  Sex: Male

DRUGS (1)
  1. DIPHENHYDRAMINE HCL [Suspect]
     Dosage: UNK, UNK
     Route: 048

REACTIONS (6)
  - VENTRICULAR EXTRASYSTOLES [None]
  - FLUSHING [None]
  - ACCIDENTAL OVERDOSE [None]
  - AGITATION [None]
  - ACCIDENTAL DRUG INTAKE BY CHILD [None]
  - VENTRICULAR TACHYCARDIA [None]
